FAERS Safety Report 8494072-5 (Version None)
Quarter: 2012Q2

REPORT INFORMATION
  Report Type: 
  Country: None (occurrence: None)
  Receive Date: 20120629
  Receipt Date: 20120629
  Transmission Date: 20120825
  Serious: Yes (Life-Threatening)
  Sender: FDA-Public Use
  Company Number: None

PATIENT
  Age: 53 Year
  Sex: Male
  Weight: 95 kg

DRUGS (4)
  1. RISPERIDONE [Suspect]
     Indication: PANIC DISORDER
     Dosage: 0.5MG B.I.D. ORAL  2 DOSES
     Route: 048
     Dates: start: 20120616
  2. OPIATES [Concomitant]
  3. VALIUM [Concomitant]
  4. CELEXA [Concomitant]

REACTIONS (2)
  - THROAT TIGHTNESS [None]
  - ANGIOEDEMA [None]
